FAERS Safety Report 9104243 (Version 9)
Quarter: 2013Q4

REPORT INFORMATION
  Report Type: Report from Study
  Country: CA (occurrence: CA)
  Receive Date: 20130219
  Receipt Date: 20131025
  Transmission Date: 20140711
  Serious: Yes (Other)
  Sender: FDA-Public Use
  Company Number: CA-ROCHE-1172847

PATIENT
  Age: 60 Year
  Sex: Male
  Weight: 90 kg

DRUGS (13)
  1. ACTEMRA [Suspect]
     Indication: RHEUMATOID ARTHRITIS
     Route: 042
     Dates: start: 20121219, end: 20131022
  2. RITUXAN [Suspect]
     Indication: RHEUMATOID ARTHRITIS
     Dosage: DAY 1 AND 15
     Route: 042
     Dates: start: 20120319, end: 20120823
  3. ARAVA [Concomitant]
     Route: 065
  4. PREDNISONE [Concomitant]
     Route: 065
  5. MAVIK [Concomitant]
     Route: 065
  6. FOSAVANCE [Concomitant]
     Route: 065
  7. SOFLAX (CANADA) [Concomitant]
     Route: 065
  8. DIPHENHYDRAMINE HCL [Concomitant]
     Route: 048
     Dates: start: 20120319, end: 20120823
  9. ACETAMINOPHEN [Concomitant]
     Route: 048
     Dates: start: 20120319, end: 20120823
  10. METHYLPREDNISOLONE [Concomitant]
     Route: 042
     Dates: start: 20120319, end: 20120823
  11. FUROSEMIDE [Concomitant]
  12. LEFLUNOMIDE [Concomitant]
  13. ELAVIL (CANADA) [Concomitant]

REACTIONS (19)
  - Corneal disorder [Unknown]
  - Drug effect decreased [Unknown]
  - Pulmonary oedema [Not Recovered/Not Resolved]
  - Drug ineffective [Unknown]
  - Injection site extravasation [Recovered/Resolved]
  - Infusion related reaction [Recovered/Resolved]
  - Paraesthesia [Not Recovered/Not Resolved]
  - Burning sensation [Not Recovered/Not Resolved]
  - Dry eye [Not Recovered/Not Resolved]
  - Weight increased [Not Recovered/Not Resolved]
  - Rheumatoid arthritis [Not Recovered/Not Resolved]
  - Arthralgia [Not Recovered/Not Resolved]
  - Gait disturbance [Not Recovered/Not Resolved]
  - Insomnia [Not Recovered/Not Resolved]
  - Eye swelling [Not Recovered/Not Resolved]
  - Pain in extremity [Not Recovered/Not Resolved]
  - Musculoskeletal pain [Not Recovered/Not Resolved]
  - Arthritis [Not Recovered/Not Resolved]
  - Blood pressure increased [Unknown]
